FAERS Safety Report 4775738-7 (Version None)
Quarter: 2005Q3

REPORT INFORMATION
  Report Type: 
  Country: None (occurrence: None)
  Receive Date: 20050921
  Receipt Date: 20050921
  Transmission Date: 20060218
  Serious: Yes (Hospitalization, Other)
  Sender: FDA-Public Use
  Company Number: None

PATIENT
  Sex: Female
  Weight: 52.1637 kg

DRUGS (5)
  1. CYCLOPHOSPHAMIDE [Suspect]
     Indication: NEOPLASM
     Dosage: SEE IMAGE
     Dates: start: 20050822, end: 20050912
  2. METHOTREXATE [Suspect]
     Dosage: SEE IMAGE
     Dates: end: 20050829
  3. FLUOROURACIL [Suspect]
     Dosage: SEE IMAGE
     Dates: start: 20050829, end: 20050829
  4. LEVAQUIN [Concomitant]
  5. MEGACE [Concomitant]

REACTIONS (7)
  - ASTHENIA [None]
  - BLOOD POTASSIUM DECREASED [None]
  - DEHYDRATION [None]
  - FATIGUE [None]
  - HYPOTENSION [None]
  - HYPOXIA [None]
  - SEPSIS [None]
